FAERS Safety Report 26187379 (Version 1)
Quarter: 2025Q4

REPORT INFORMATION
  Report Type: Spontaneous
  Country: JP (occurrence: JP)
  Receive Date: 20251222
  Receipt Date: 20251222
  Transmission Date: 20260118
  Serious: Yes (Death, Other)
  Sender: Vantive US Healthcare
  Company Number: JP-VANTIVE-2025VAN005456

PATIENT
  Age: 69 Year
  Sex: Female

DRUGS (2)
  1. REGUNEAL LCA [Suspect]
     Active Substance: CALCIUM CHLORIDE\DEXTROSE MONOHYDRATE\HYDROCHLORIC ACID\MAGNESIUM CHLORIDE\SODIUM BICARBONATE\SODIUM
     Indication: Peritoneal dialysis
     Dosage: 5L
  2. INSULIN NOS [Concomitant]
     Active Substance: INSULIN NOS
     Dosage: INJECTABLE

REACTIONS (4)
  - Cardiac failure [Fatal]
  - General physical health deterioration [Fatal]
  - Asthenia [Fatal]
  - Feeding disorder [Unknown]
